FAERS Safety Report 24428691 (Version 1)
Quarter: 2024Q4

REPORT INFORMATION
  Report Type: Spontaneous
  Country: US (occurrence: US)
  Receive Date: 20241011
  Receipt Date: 20241011
  Transmission Date: 20250115
  Serious: Yes (Death, Other)
  Sender: PURDUE
  Company Number: US-PURDUE PHARMA-USA-2024-0312469

PATIENT
  Age: 96 Year
  Sex: Male

DRUGS (1)
  1. OXYCODONE HYDROCHLORIDE [Suspect]
     Active Substance: OXYCODONE HYDROCHLORIDE
     Indication: Pain
     Dosage: UNK
     Route: 065
     Dates: start: 20221004

REACTIONS (9)
  - Injury [Fatal]
  - Fall [Fatal]
  - Acute kidney injury [Unknown]
  - Pain in extremity [Unknown]
  - Joint dislocation [Unknown]
  - Post procedural infection [Unknown]
  - Dehydration [Unknown]
  - Agitation [Unknown]
  - Adverse event [Unknown]

NARRATIVE: CASE EVENT DATE: 20221001
